FAERS Safety Report 25540137 (Version 1)
Quarter: 2025Q3

REPORT INFORMATION
  Report Type: Spontaneous
  Country: US (occurrence: None)
  Receive Date: 20250710
  Receipt Date: 20250710
  Transmission Date: 20251020
  Serious: No
  Sender: FDA-CTU
  Company Number: None

PATIENT
  Age: 53 Year
  Sex: Female
  Weight: 94.95 kg

DRUGS (7)
  1. SOMAVERT [Suspect]
     Active Substance: PEGVISOMANT
     Indication: Acromegaly
     Dosage: FREQUENCY : DAILY;?
     Route: 058
  2. SOMATULINE DEPOT [Suspect]
     Active Substance: LANREOTIDE ACETATE
     Indication: Acromegaly
     Route: 058
  3. SYNTHROID [Concomitant]
     Active Substance: LEVOTHYROXINE SODIUM
  4. DULOXETINE [Concomitant]
     Active Substance: DULOXETINE
  5. TAMOXIFEN [Concomitant]
     Active Substance: TAMOXIFEN
  6. SUNOSI [Concomitant]
     Active Substance: SOLRIAMFETOL
  7. VITAMIN D3 [Concomitant]
     Active Substance: CHOLECALCIFEROL

REACTIONS (4)
  - Cancer in remission [None]
  - Treatment delayed [None]
  - Product use complaint [None]
  - Fatigue [None]
